FAERS Safety Report 8179165-4 (Version None)
Quarter: 2012Q1

REPORT INFORMATION
  Report Type: 
  Country: None (occurrence: None)
  Receive Date: 20120302
  Receipt Date: 20120228
  Transmission Date: 20120608
  Serious: Yes (Hospitalization)
  Sender: FDA-Public Use
  Company Number: US-PFIZER INC-2012053653

PATIENT
  Sex: Male
  Weight: 95.238 kg

DRUGS (20)
  1. CELEBREX [Suspect]
     Indication: ARTHRALGIA
     Dosage: 200 MG, DAILY
     Route: 048
  2. OXYCODONE HCL AND ACETAMINOPHEN [Concomitant]
     Indication: PAIN
  3. LOVAZA [Concomitant]
     Indication: CARDIAC DISORDER
     Dosage: 1000 MG, 2X/DAY
  4. ACETYLSALICYLIC ACID [Concomitant]
     Indication: CARDIAC DISORDER
     Dosage: 2 TABLETS OF 81 MG, DAILY
  5. OSTEO BI-FLEX [Concomitant]
     Indication: PAIN
  6. CELEBREX [Suspect]
     Indication: BACK PAIN
  7. CELEBREX [Suspect]
     Indication: PAIN
  8. OSTEO BI-FLEX [Concomitant]
     Indication: BACK PAIN
  9. RAMIPRIL [Concomitant]
     Indication: HYPERTENSION
     Dosage: 10 MG, DAILY
  10. PLAVIX [Concomitant]
     Indication: ANTICOAGULANT THERAPY
     Dosage: 75 MG, DAILY
  11. LIPITOR [Concomitant]
     Indication: BLOOD CHOLESTEROL ABNORMAL
     Dosage: 40 MG, DAILY
     Dates: end: 20120101
  12. SAW PALMETTO [Concomitant]
     Indication: PROSTATIC DISORDER
     Dosage: 2 CAPSULES, 2X/DAY
     Route: 048
  13. OXYCODONE HCL AND ACETAMINOPHEN [Concomitant]
     Indication: ARTHRALGIA
     Dosage: UNK, 3X/DAY
     Dates: start: 19930101
  14. CARISOPRODOL [Concomitant]
     Indication: PAIN
  15. OXYCODONE HCL AND ACETAMINOPHEN [Concomitant]
     Indication: BACK PAIN
  16. OSTEO BI-FLEX [Concomitant]
     Indication: ARTHRALGIA
     Dosage: UNK, 2X/DAY
     Dates: start: 19930101
  17. METOPROLOL TARTRATE [Concomitant]
     Indication: HYPERTENSION
     Dosage: 25 MG, 2X/DAY
  18. ZETIA [Concomitant]
     Indication: BLOOD CHOLESTEROL ABNORMAL
     Dosage: 10 MG, DAILY
  19. CARISOPRODOL [Concomitant]
     Indication: ARTHRALGIA
     Dosage: UNK, 3X/DAY
     Dates: start: 19930101
  20. CARISOPRODOL [Concomitant]
     Indication: BACK PAIN

REACTIONS (1)
  - MYOCARDIAL INFARCTION [None]
